FAERS Safety Report 4403085-1 (Version None)
Quarter: 2004Q3

REPORT INFORMATION
  Report Type: 
  Country: None (occurrence: None)
  Receive Date: 20040721
  Receipt Date: 20040224
  Transmission Date: 20050211
  Serious: No
  Sender: FDA-Public Use
  Company Number: US-GLAXOSMITHKLINE-A0499631A

PATIENT
  Age: 55 Year
  Sex: Female
  Weight: 63.6 kg

DRUGS (3)
  1. IMITREX [Suspect]
     Indication: MIGRAINE
     Dosage: 100MG PER DAY
     Route: 048
     Dates: start: 20030811, end: 20030811
  2. SEROQUEL [Concomitant]
     Dosage: 12.5MG PER DAY
     Route: 048
  3. CELEXA [Concomitant]
     Dosage: 12.5MG PER DAY
     Route: 048

REACTIONS (1)
  - DRUG INEFFECTIVE [None]
